FAERS Safety Report 10181994 (Version 1)
Quarter: 2014Q2

REPORT INFORMATION
  Report Type: Spontaneous
  Country: US (occurrence: US)
  Receive Date: 20140519
  Receipt Date: 20140519
  Transmission Date: 20141212
  Serious: No
  Sender: FDA-Public Use
  Company Number: US-GILEAD-2014-0102748

PATIENT
  Age: 77 Year
  Sex: Female

DRUGS (15)
  1. LETAIRIS [Suspect]
     Indication: PULMONARY ARTERIAL HYPERTENSION
     Dosage: 10 MG, QD
     Route: 065
     Dates: start: 20140218
  2. LETAIRIS [Suspect]
     Dosage: 5 MG, QD
     Route: 065
     Dates: start: 20140123, end: 20140218
  3. ADCIRCA [Concomitant]
  4. FUROSEMIDE [Concomitant]
  5. SPIRONOLACTONE [Concomitant]
  6. POTASSIUM [Concomitant]
  7. METFORMIN [Concomitant]
  8. DIGOXIN [Concomitant]
  9. CARVEDILOL [Concomitant]
  10. ATORVASTATIN [Concomitant]
  11. ASPIRIN [Concomitant]
  12. ALPRAZOLAM [Concomitant]
  13. OMEGA-3 FATTY ACIDS [Concomitant]
  14. GARLIC                             /01570501/ [Concomitant]
  15. VITAMIN B-12 [Concomitant]

REACTIONS (4)
  - Arthritis [Unknown]
  - Gout [Unknown]
  - Pain in extremity [Not Recovered/Not Resolved]
  - Peripheral swelling [Not Recovered/Not Resolved]
